FAERS Safety Report 6253526-2 (Version None)
Quarter: 2009Q2

REPORT INFORMATION
  Report Type: 
  Country: None (occurrence: None)
  Receive Date: 20090629
  Receipt Date: 20090629
  Transmission Date: 20091009
  Serious: Yes (Life-Threatening)
  Sender: FDA-Public Use
  Company Number: None

PATIENT
  Age: 44 Year
  Sex: Female
  Weight: 62.1428 kg

DRUGS (2)
  1. ACIPHEX [Suspect]
     Indication: GASTROOESOPHAGEAL REFLUX DISEASE
     Dosage: 1 A DAY BUCCAL; 2 WEEKS/QUIT
     Route: 002
     Dates: start: 20090612, end: 20090613
  2. SYNTHROID [Concomitant]

REACTIONS (7)
  - DIZZINESS [None]
  - DRUG HYPERSENSITIVITY [None]
  - DRUG TOXICITY [None]
  - FEELING ABNORMAL [None]
  - HEAD DISCOMFORT [None]
  - PALPITATIONS [None]
  - TONGUE DISORDER [None]
